FAERS Safety Report 14655310 (Version 2)
Quarter: 2018Q2

REPORT INFORMATION
  Report Type: Report from Study
  Country: US (occurrence: US)
  Receive Date: 20180319
  Receipt Date: 20180407
  Transmission Date: 20180711
  Serious: Yes (Life-Threatening, Other)
  Sender: FDA-Public Use
  Company Number: US-TESARO, INC-US-2018TSO00566

PATIENT

DRUGS (3)
  1. ZEJULA [Suspect]
     Active Substance: NIRAPARIB
     Indication: MALIGNANT PERITONEAL NEOPLASM
     Dosage: 300 MG, QD
     Route: 048
     Dates: start: 20180123
  2. ZEJULA [Suspect]
     Active Substance: NIRAPARIB
     Dosage: 200 MG, QD
     Route: 048
  3. ZEJULA [Suspect]
     Active Substance: NIRAPARIB
     Dosage: 300 MG, QD
     Route: 048
     Dates: end: 20180214

REACTIONS (17)
  - Haemoglobin decreased [Not Recovered/Not Resolved]
  - Contusion [Not Recovered/Not Resolved]
  - Weight decreased [Unknown]
  - Haemoglobin increased [Recovered/Resolved]
  - Thrombocytopenia [Recovering/Resolving]
  - Blood pressure increased [Not Recovered/Not Resolved]
  - Petechiae [Not Recovered/Not Resolved]
  - Decreased appetite [Unknown]
  - Tachycardia [Not Recovered/Not Resolved]
  - Fatigue [Unknown]
  - Anaemia [Not Recovered/Not Resolved]
  - Middle insomnia [Not Recovered/Not Resolved]
  - White blood cell count decreased [Recovering/Resolving]
  - Nausea [Recovering/Resolving]
  - Epistaxis [Not Recovered/Not Resolved]
  - Neutrophil count decreased [Recovering/Resolving]
  - Bone pain [Recovered/Resolved]
